FAERS Safety Report 24164264 (Version 1)
Quarter: 2024Q3

REPORT INFORMATION
  Report Type: Spontaneous
  Country: LU (occurrence: LU)
  Receive Date: 20240801
  Receipt Date: 20240801
  Transmission Date: 20241017
  Serious: Yes (Other)
  Sender: PFIZER
  Company Number: None

PATIENT
  Age: 57 Year
  Sex: Male
  Weight: 81 kg

DRUGS (6)
  1. IRINOTECAN [Suspect]
     Active Substance: IRINOTECAN
     Indication: Colon cancer
     Dosage: 21TH COURSE OF CHEMOTHERAPY
     Route: 042
     Dates: start: 20240724, end: 20240724
  2. ATROPINE [Concomitant]
     Active Substance: ATROPINE
     Indication: Chemotherapy side effect prophylaxis
     Dosage: 0.25 MG, SINGLE
     Route: 058
     Dates: start: 20240724, end: 20240724
  3. DEXAMETHASONE [Concomitant]
     Active Substance: DEXAMETHASONE
     Indication: Chemotherapy side effect prophylaxis
     Dosage: 8 MG, SINGLE
     Route: 042
     Dates: start: 20240724, end: 20240724
  4. APREPITANT [Concomitant]
     Active Substance: APREPITANT
     Indication: Chemotherapy side effect prophylaxis
     Dosage: 125 MG, SINGLE
     Route: 048
     Dates: start: 20240724, end: 20240724
  5. ZIRABEV [Concomitant]
     Active Substance: BEVACIZUMAB-BVZR
     Indication: Colon cancer
     Dosage: 404 MG, CYCLIC
     Route: 042
     Dates: start: 20240724, end: 20240724
  6. ONDANSETRON [Concomitant]
     Active Substance: ONDANSETRON
     Indication: Chemotherapy side effect prophylaxis
     Dosage: 8 MG, SINGLE
     Route: 042
     Dates: start: 20240724, end: 20240724

REACTIONS (4)
  - Infusion related reaction [Recovering/Resolving]
  - Erythema [Recovering/Resolving]
  - Hyperhidrosis [Recovering/Resolving]
  - Paraesthesia [Recovering/Resolving]

NARRATIVE: CASE EVENT DATE: 20240724
